FAERS Safety Report 15885841 (Version 1)
Quarter: 2019Q1

REPORT INFORMATION
  Report Type: Spontaneous
  Country: US (occurrence: US)
  Receive Date: 20190107
  Receipt Date: 20190107
  Transmission Date: 20190417
  Serious: Yes (Hospitalization)
  Sender: FDA-Public Use
  Company Number: None

PATIENT
  Age: 56 Year
  Sex: Male

DRUGS (11)
  1. METOPROLOL TAB 37.5MG [Concomitant]
  2. VITAMIN B-12 TAB 1000 MCG [Concomitant]
  3. VITAMIN B-8 TAB 25MG [Concomitant]
  4. COZAAR TAB 50MG [Concomitant]
  5. SINGULAIR TAB 10MG [Concomitant]
  6. VITAMIN D CAP 50000 UNIT [Concomitant]
  7. VITAMIN C TAB 500MG [Concomitant]
  8. METFORMIN TAB 1000MG [Concomitant]
  9. ASPIRIN TAB 81 MG EC [Concomitant]
  10. LIPITOR TAB 20MG [Concomitant]
  11. ESBRIET [Suspect]
     Active Substance: PIRFENIDONE
     Indication: IDIOPATHIC PULMONARY FIBROSIS
     Route: 048
     Dates: start: 20180614

REACTIONS (1)
  - Hospitalisation [None]

NARRATIVE: CASE EVENT DATE: 20190104
